FAERS Safety Report 13959663 (Version 1)
Quarter: 2017Q3

REPORT INFORMATION
  Report Type: Spontaneous
  Country: JP (occurrence: JP)
  Receive Date: 20170911
  Receipt Date: 20170911
  Transmission Date: 20171128
  Serious: Yes (Life-Threatening, Other)
  Sender: FDA-Public Use
  Company Number: JP-ALLERGAN-1750809US

PATIENT
  Age: 60 Year
  Sex: Male
  Weight: 54 kg

DRUGS (10)
  1. UBRETID [Concomitant]
     Active Substance: DISTIGMINE BROMIDE
     Indication: PRODUCT USED FOR UNKNOWN INDICATION
     Dosage: 5 MG, QD
     Route: 048
     Dates: end: 20170715
  2. URSODEOXYCHOLIC ACID - BP [Suspect]
     Active Substance: URSODIOL
     Indication: PRODUCT USED FOR UNKNOWN INDICATION
     Dosage: 150 MG, SINGLE
     Route: 058
     Dates: start: 20170715, end: 20170715
  3. MEILAX [Concomitant]
     Active Substance: ETHYL LOFLAZEPATE
     Indication: INSOMNIA
     Dosage: 2 MG, UNK
     Route: 048
     Dates: start: 20170529, end: 20170605
  4. AMPICILLIN AND SULBACTAM [Concomitant]
     Active Substance: AMPICILLIN SODIUM\SULBACTAM SODIUM
     Indication: PRODUCT USED FOR UNKNOWN INDICATION
     Dosage: 3 G, QID
     Route: 065
     Dates: start: 20170717
  5. MAGMITT [Concomitant]
     Active Substance: MAGNESIUM OXIDE
     Indication: PRODUCT USED FOR UNKNOWN INDICATION
     Dosage: 250 MG, TID
     Route: 048
     Dates: end: 20170715
  6. HARNAL [Concomitant]
     Active Substance: TAMSULOSIN HYDROCHLORIDE
     Indication: PRODUCT USED FOR UNKNOWN INDICATION
     Dosage: 0.2 MG, QD
     Route: 048
     Dates: end: 20170715
  7. CYANAMIDE [Suspect]
     Active Substance: CYANAMIDE
     Indication: ALCOHOLISM
     Dosage: 20 ML, QD
     Route: 065
     Dates: start: 20170709, end: 20170714
  8. CYANAMIDE [Suspect]
     Active Substance: CYANAMIDE
     Dosage: 10 ML, QD
     Route: 048
     Dates: start: 20170629
  9. LUNESTA [Concomitant]
     Active Substance: ESZOPICLONE
     Indication: INSOMNIA
     Dosage: 1 MG, QD
     Route: 048
     Dates: start: 20170617
  10. LUNESTA [Concomitant]
     Active Substance: ESZOPICLONE
     Dosage: 2 MG, QD
     Route: 048
     Dates: start: 20170708, end: 20170715

REACTIONS (16)
  - Conjunctival haemorrhage [Recovered/Resolved]
  - Skin erosion [Recovered/Resolved]
  - Blister [Recovered/Resolved]
  - Rash pustular [Recovered/Resolved]
  - Oral mucosa erosion [Recovered/Resolved]
  - Skin exfoliation [Recovered/Resolved]
  - Generalised erythema [Recovered/Resolved]
  - Increased bronchial secretion [Unknown]
  - Skin ulcer [Recovered/Resolved]
  - Endotracheal intubation [Unknown]
  - Pneumonia aspiration [Unknown]
  - Conjunctival hyperaemia [Recovered/Resolved]
  - Toxic epidermal necrolysis [Recovered/Resolved]
  - Nikolsky^s sign [Recovered/Resolved]
  - Skin injury [Recovered/Resolved]
  - Scab [Unknown]

NARRATIVE: CASE EVENT DATE: 201707
